FAERS Safety Report 7681326-5 (Version None)
Quarter: 2011Q3

REPORT INFORMATION
  Report Type: 
  Country: None (occurrence: None)
  Receive Date: 20110809
  Receipt Date: 20110728
  Transmission Date: 20111222
  Serious: Yes (Hospitalization, Other)
  Sender: FDA-Public Use
  Company Number: 2006-150706-NL

PATIENT
  Age: 26 Year
  Sex: Female

DRUGS (4)
  1. NUVARING [Suspect]
     Indication: CONTRACEPTION
     Dosage: 1 DF; VAG
     Route: 067
     Dates: start: 20041102, end: 20061022
  2. IBUPROFEN [Concomitant]
  3. DEPO-PROVERA [Suspect]
     Indication: CONTRACEPTION
     Dates: start: 20060321
  4. BIRTH CONTROL PILLS [Suspect]
     Indication: CONTRACEPTION

REACTIONS (20)
  - LYMPHADENOPATHY [None]
  - ADENOMYOSIS [None]
  - VAGINAL HAEMORRHAGE [None]
  - CONSTIPATION [None]
  - UTERINE LEIOMYOMA [None]
  - ASPARTATE AMINOTRANSFERASE INCREASED [None]
  - ALANINE AMINOTRANSFERASE INCREASED [None]
  - PREGNANCY WITH CONTRACEPTIVE DEVICE [None]
  - PELVIC PAIN [None]
  - PULMONARY EMBOLISM [None]
  - DEEP VEIN THROMBOSIS [None]
  - PYREXIA [None]
  - MENORRHAGIA [None]
  - CHILLS [None]
  - INTRA-UTERINE DEATH [None]
  - MATERNAL EXPOSURE BEFORE PREGNANCY [None]
  - NAUSEA [None]
  - LOSS OF CONSCIOUSNESS [None]
  - ABORTION INDUCED [None]
  - ORTHOSTATIC HYPOTENSION [None]
